FAERS Safety Report 5617473-9 (Version None)
Quarter: 2008Q1

REPORT INFORMATION
  Report Type: 
  Country: None (occurrence: None)
  Receive Date: 20080204
  Receipt Date: 20080123
  Transmission Date: 20080703
  Serious: Yes (Death, Hospitalization)
  Sender: FDA-Public Use
  Company Number: 18279

PATIENT
  Age: 59 Year
  Sex: Male

DRUGS (2)
  1. CARBOPLATIN [Suspect]
     Indication: NON-SMALL CELL LUNG CANCER
  2. PACLITAXEL [Suspect]
     Indication: NON-SMALL CELL LUNG CANCER

REACTIONS (17)
  - BLOOD CULTURE POSITIVE [None]
  - BLOOD DISORDER [None]
  - BLOOD SMEAR TEST ABNORMAL [None]
  - CARDIAC ARREST [None]
  - CHROMATURIA [None]
  - FLATULENCE [None]
  - GENERAL PHYSICAL HEALTH DETERIORATION [None]
  - HAEMOLYSIS [None]
  - HYPOXIA [None]
  - JAUNDICE [None]
  - LIVER ABSCESS [None]
  - METABOLIC ACIDOSIS [None]
  - MORGANELLA INFECTION [None]
  - NEUTROPENIC SEPSIS [None]
  - NO THERAPEUTIC RESPONSE [None]
  - SOMNOLENCE [None]
  - WHITE BLOOD CELL COUNT DECREASED [None]
